FAERS Safety Report 8530947-6 (Version None)
Quarter: 2012Q3

REPORT INFORMATION
  Report Type: 
  Country: None (occurrence: None)
  Receive Date: 20120723
  Receipt Date: 20120710
  Transmission Date: 20120928
  Serious: Yes (Other)
  Sender: FDA-Public Use
  Company Number: FR-ROCHE-1086680

PATIENT
  Age: 32 Year
  Sex: Male

DRUGS (1)
  1. ISOTRETINOIN [Suspect]
     Indication: PRODUCT USED FOR UNKNOWN INDICATION
     Route: 048
     Dates: start: 19920929, end: 19921102

REACTIONS (9)
  - HYPERHIDROSIS [None]
  - MYALGIA [None]
  - FATIGUE [None]
  - LIP DRY [None]
  - LIP HAEMORRHAGE [None]
  - LIBIDO DECREASED [None]
  - PHOTOSENSITIVITY REACTION [None]
  - ANXIETY [None]
  - HEADACHE [None]
